FAERS Safety Report 16296935 (Version 1)
Quarter: 2019Q2

REPORT INFORMATION
  Report Type: Spontaneous
  Country: US (occurrence: US)
  Receive Date: 20190509
  Receipt Date: 20190509
  Transmission Date: 20190711
  Serious: Yes (Death)
  Sender: FDA-Public Use
  Company Number: None

PATIENT
  Age: 46 Year
  Sex: Male
  Weight: 85.5 kg

DRUGS (1)
  1. ONFI [Suspect]
     Active Substance: CLOBAZAM
     Indication: SEIZURE
     Dosage: ?          OTHER STRENGTH:NOT KNOWN;QUANTITY:1 TABLET(S);?
     Route: 048
     Dates: start: 20181101, end: 20190228

REACTIONS (6)
  - Mental status changes [None]
  - Completed suicide [None]
  - Mania [None]
  - Hanging [None]
  - Seizure [None]
  - Contraindicated product prescribed [None]

NARRATIVE: CASE EVENT DATE: 20190228
